FAERS Safety Report 11291695 (Version 1)
Quarter: 2015Q3

REPORT INFORMATION
  Report Type: Spontaneous
  Country: US (occurrence: US)
  Receive Date: 20150722
  Receipt Date: 20150722
  Transmission Date: 20151125
  Serious: No
  Sender: FDA-Public Use
  Company Number: US-DRREDDYS-USA/USA/15/0045893

PATIENT
  Age: 74 Year
  Sex: Female

DRUGS (1)
  1. LETROZOLE TABLETS, USP 2.5 MG [Suspect]
     Active Substance: LETROZOLE
     Indication: HORMONE THERAPY
     Route: 065

REACTIONS (1)
  - Recall phenomenon [Recovered/Resolved]
